FAERS Safety Report 12589751 (Version 2)
Quarter: 2016Q3

REPORT INFORMATION
  Report Type: Spontaneous
  Country: DE (occurrence: DE)
  Receive Date: 20160725
  Receipt Date: 20160810
  Transmission Date: 20161109
  Serious: Yes (Hospitalization)
  Sender: FDA-Public Use
  Company Number: DE-B.I. PHARMACEUTICALS,INC./RIDGEFIELD-2016-BI-47922DE

PATIENT
  Age: 87 Year
  Sex: Male
  Weight: 82 kg

DRUGS (1)
  1. PRADAXA [Suspect]
     Active Substance: DABIGATRAN ETEXILATE MESYLATE
     Indication: ATRIAL FIBRILLATION
     Dosage: 220 MG
     Route: 048
     Dates: start: 201408, end: 20160522

REACTIONS (4)
  - Cerebral haemorrhage [Recovered/Resolved]
  - Oedema [Unknown]
  - Brain midline shift [Unknown]
  - Fall [Unknown]

NARRATIVE: CASE EVENT DATE: 20160520
